FAERS Safety Report 8589452 (Version 2)
Quarter: 2012Q4

REPORT INFORMATION
  Report Type: 
  Country: US (occurrence: US)
  Receive Date: 20120531
  Receipt Date: 20121119
  Transmission Date: 20130627
  Serious: Yes (Other)
  Sender: FDA-Public Use
  Company Number: US-PFIZER INC-2012127120

PATIENT
  Sex: Female

DRUGS (3)
  1. EFFEXOR XR [Suspect]
     Dosage: UNK
     Dates: start: 20000101
  2. EFFEXOR XR [Suspect]
     Dosage: 150 mg, UNK
  3. EFFEXOR XR [Suspect]
     Dosage: 75 mg, UNK

REACTIONS (4)
  - Pharyngeal disorder [Unknown]
  - Hernia [Unknown]
  - Arthropathy [Unknown]
  - Cataract [Unknown]
